FAERS Safety Report 9833798 (Version 3)
Quarter: 2014Q1

REPORT INFORMATION
  Report Type: Report from Study
  Country: BR (occurrence: BR)
  Receive Date: 20140122
  Receipt Date: 20140206
  Transmission Date: 20141002
  Serious: Yes (Hospitalization)
  Sender: FDA-Public Use
  Company Number: BR-ROCHE-1309603

PATIENT
  Age: 55 Year
  Sex: Female
  Weight: 107 kg

DRUGS (4)
  1. ACTEMRA [Suspect]
     Indication: RHEUMATOID ARTHRITIS
     Dosage: LAST DOSE RECEIVED ON 17/OCT/2013
     Route: 065
     Dates: start: 20130923, end: 20131017
  2. PREDNISONE [Concomitant]
  3. LOSARTAN [Concomitant]
  4. RANITIDINE [Concomitant]

REACTIONS (7)
  - Pleural effusion [Recovering/Resolving]
  - Pleural effusion [Unknown]
  - Fatigue [Recovering/Resolving]
  - Pain [Not Recovered/Not Resolved]
  - Cardiomegaly [Unknown]
  - No therapeutic response [Unknown]
  - Cardiomegaly [Unknown]
